FAERS Safety Report 6967432-9 (Version None)
Quarter: 2010Q3

REPORT INFORMATION
  Report Type: 
  Country: None (occurrence: None)
  Receive Date: 20100907
  Receipt Date: 20100831
  Transmission Date: 20110219
  Serious: Yes (Other)
  Sender: FDA-Public Use
  Company Number: US-ELI_LILLY_AND_COMPANY-US201008001764

PATIENT
  Sex: Female

DRUGS (11)
  1. HUMALOG [Suspect]
     Indication: TYPE 1 DIABETES MELLITUS
  2. HUMULIN N [Suspect]
     Indication: TYPE 1 DIABETES MELLITUS
  3. HUMULIN R [Suspect]
     Indication: TYPE 1 DIABETES MELLITUS
  4. MULTIVITAMIN [Concomitant]
  5. DIOVAN HCT [Concomitant]
  6. OMEPRAZOLE [Concomitant]
  7. EVISTA [Concomitant]
  8. ZETIA [Concomitant]
  9. ASPIRIN [Concomitant]
  10. VITAMINS [Concomitant]
  11. MINERAL TAB [Concomitant]

REACTIONS (3)
  - MACULOPATHY [None]
  - RETINAL DISORDER [None]
  - VISUAL IMPAIRMENT [None]
